FAERS Safety Report 13258743 (Version 1)
Quarter: 2017Q1

REPORT INFORMATION
  Report Type: Spontaneous
  Country: US (occurrence: US)
  Receive Date: 20170222
  Receipt Date: 20170222
  Transmission Date: 20170428
  Serious: No
  Sender: FDA-Public Use
  Company Number: US-APOTEX-2017AP007019

PATIENT
  Age: 61 Year
  Sex: Female

DRUGS (9)
  1. TRAZODONE HYDROCHLORIDE. [Suspect]
     Active Substance: TRAZODONE HYDROCHLORIDE
     Indication: PRODUCT USED FOR UNKNOWN INDICATION
     Route: 065
  2. CITALOPRAM [Concomitant]
     Active Substance: CITALOPRAM HYDROBROMIDE
     Indication: PRODUCT USED FOR UNKNOWN INDICATION
     Route: 065
  3. LISINOPRIL. [Concomitant]
     Active Substance: LISINOPRIL
     Indication: HYPERTENSION
     Dosage: 10 MG, BID
     Route: 065
  4. GABAPENTIN. [Concomitant]
     Active Substance: GABAPENTIN
     Indication: PRODUCT USED FOR UNKNOWN INDICATION
     Dosage: 600 MG, BID
     Route: 065
  5. NORVASC [Concomitant]
     Active Substance: AMLODIPINE BESYLATE
     Indication: HYPERTENSION
     Dosage: 5 MG, BID
     Route: 065
  6. GABAPENTIN. [Concomitant]
     Active Substance: GABAPENTIN
     Dosage: 800 MG, BID
     Route: 065
  7. PROAIR HFA [Concomitant]
     Active Substance: ALBUTEROL SULFATE
     Indication: SINUSITIS
  8. ZANTAC [Concomitant]
     Active Substance: RANITIDINE HYDROCHLORIDE
     Indication: GASTRIC ULCER
     Dosage: 150 MG, QD
     Route: 065
  9. PROAIR HFA [Concomitant]
     Active Substance: ALBUTEROL SULFATE
     Indication: ASTHMA
     Dosage: UNK, PRN
     Route: 065

REACTIONS (1)
  - Increased appetite [Unknown]
